FAERS Safety Report 16869054 (Version 3)
Quarter: 2019Q4

REPORT INFORMATION
  Report Type: Spontaneous
  Country: US (occurrence: US)
  Receive Date: 20190930
  Receipt Date: 20191202
  Transmission Date: 20200122
  Serious: Yes (Other)
  Sender: FDA-Public Use
  Company Number: US-BRISTOL-MYERS SQUIBB COMPANY-BMS-2019-092920

PATIENT
  Age: 85 Year
  Sex: Male
  Weight: 76.19 kg

DRUGS (1)
  1. ELIQUIS [Suspect]
     Active Substance: APIXABAN
     Indication: PRODUCT USED FOR UNKNOWN INDICATION
     Dosage: UNK, BID
     Route: 065

REACTIONS (5)
  - Basal cell carcinoma [Unknown]
  - Heart rate increased [Unknown]
  - Blood pressure abnormal [Unknown]
  - Intentional product misuse [Unknown]
  - Wrong technique in product usage process [Unknown]
